APPROVED DRUG PRODUCT: QSYMIA
Active Ingredient: PHENTERMINE HYDROCHLORIDE; TOPIRAMATE
Strength: EQ 11.25MG BASE;69MG
Dosage Form/Route: CAPSULE, EXTENDED RELEASE;ORAL
Application: N022580 | Product #003 | TE Code: AB
Applicant: VIVUS LLC
Approved: Jul 17, 2012 | RLD: Yes | RS: No | Type: RX

PATENTS:
Patent 9011906 | Expires: Jun 9, 2028
Patent 8895057 | Expires: Jun 9, 2028
Patent 8580299 | Expires: Jun 14, 2029
Patent 8895058 | Expires: Jun 9, 2028
Patent 9011905 | Expires: Jun 9, 2028
Patent 8580298 | Expires: May 15, 2029

EXCLUSIVITY:
Code: M-308 | Date: Sep 13, 2027